FAERS Safety Report 19113049 (Version 1)
Quarter: 2021Q2

REPORT INFORMATION
  Report Type: Spontaneous
  Country: US (occurrence: US)
  Receive Date: 20210409
  Receipt Date: 20210409
  Transmission Date: 20210717
  Serious: Yes (Other)
  Sender: FDA-Public Use
  Company Number: NVSC2020US349316

PATIENT
  Age: 5 Year
  Sex: Male

DRUGS (1)
  1. DABRAFENIB [Suspect]
     Active Substance: DABRAFENIB
     Indication: LANGERHANS^ CELL HISTIOCYTOSIS
     Dosage: UNK
     Route: 065
     Dates: start: 201708

REACTIONS (4)
  - Product use in unapproved indication [Unknown]
  - Disease recurrence [Unknown]
  - Langerhans^ cell histiocytosis [Unknown]
  - Rash [Unknown]

NARRATIVE: CASE EVENT DATE: 202002
